FAERS Safety Report 22283837 (Version 1)
Quarter: 2023Q2

REPORT INFORMATION
  Report Type: Spontaneous
  Country: US (occurrence: None)
  Receive Date: 20230503
  Receipt Date: 20230503
  Transmission Date: 20230721
  Serious: No
  Sender: FDA-Public Use
  Company Number: None

PATIENT
  Age: 76 Year
  Sex: Male
  Weight: 79.42 kg

DRUGS (18)
  1. CAPECITABINE [Suspect]
     Active Substance: CAPECITABINE
     Indication: Small intestine carcinoma
     Dosage: 1500MG TWICE DAILY ORAL?
     Route: 048
  2. ABIRATERONE [Concomitant]
     Active Substance: ABIRATERONE
  3. ATORVASTATIN [Concomitant]
  4. CALCIUM [Concomitant]
  5. ELIQUIS [Concomitant]
     Active Substance: APIXABAN
  6. GABAPENTIN [Concomitant]
  7. LORAZEPAM [Concomitant]
  8. MAGNESIUM [Concomitant]
  9. MULTIVITAMIN [Concomitant]
  10. OCUVITE [Concomitant]
     Active Substance: VITAMINS
  11. ONDANSETRON [Concomitant]
  12. OXYCODONE [Concomitant]
  13. PEPCID [Concomitant]
     Active Substance: FAMOTIDINE
  14. PREDNISONE [Concomitant]
  15. PROCHLORPERAZINE [Concomitant]
  16. SERTRALINE [Concomitant]
     Active Substance: SERTRALINE HYDROCHLORIDE
  17. TRAZODONE [Concomitant]
     Active Substance: TRAZODONE HYDROCHLORIDE
  18. VITAMIN D3 [Concomitant]
     Active Substance: CHOLECALCIFEROL

REACTIONS (1)
  - Hospice care [None]
